FAERS Safety Report 11364137 (Version 1)
Quarter: 2015Q3

REPORT INFORMATION
  Report Type: Spontaneous
  Country: NL (occurrence: NL)
  Receive Date: 20150811
  Receipt Date: 20150811
  Transmission Date: 20151125
  Serious: Yes (Disabling, Other)
  Sender: FDA-Public Use
  Company Number: NL-WATSON-2015-16589

PATIENT
  Age: 17 Year
  Sex: Female

DRUGS (1)
  1. RISPERIDONE (UNKNOWN) [Suspect]
     Active Substance: RISPERIDONE
     Indication: BIPOLAR I DISORDER
     Dosage: 2 MG, DAILY
     Route: 065

REACTIONS (2)
  - Benign intracranial hypertension [Recovered/Resolved with Sequelae]
  - Weight increased [Recovered/Resolved]
